FAERS Safety Report 22399772 (Version 2)
Quarter: 2024Q3

REPORT INFORMATION
  Report Type: Spontaneous
  Country: US (occurrence: US)
  Receive Date: 20230602
  Receipt Date: 20240930
  Transmission Date: 20241017
  Serious: Yes (Hospitalization, Other)
  Sender: PFIZER
  Company Number: US-PFIZER INC-PV202300096698

PATIENT
  Age: 64 Year
  Sex: Female

DRUGS (3)
  1. IBRANCE [Suspect]
     Active Substance: PALBOCICLIB
     Dosage: 100 MG
  2. IBRANCE [Suspect]
     Active Substance: PALBOCICLIB
     Dosage: 75 MG TAKE 1 TABLET ON DAYS 1-21 OF 28 DAY CYCLE
  3. IBRANCE [Suspect]
     Active Substance: PALBOCICLIB
     Dosage: 3 DAYS ON AND 1 DAY OFF OF THE 3 WEEKS ON AND 1 WEEK OFF SCHEDULE

REACTIONS (2)
  - Cardiac operation [Unknown]
  - Intentional product misuse [Unknown]
